FAERS Safety Report 8885270 (Version 1)
Quarter: 2012Q4

REPORT INFORMATION
  Report Type: 
  Country: US (occurrence: US)
  Receive Date: 20121105
  Receipt Date: 20121105
  Transmission Date: 20130627
  Serious: Yes (Death, Hospitalization)
  Sender: FDA-Public Use
  Company Number: US-ACTELION-A-US2012-73447

PATIENT
  Age: 81 Year
  Sex: Female

DRUGS (3)
  1. VELETRI [Suspect]
     Indication: PULMONARY ARTERIAL HYPERTENSION
     Dosage: 30 ng/kg, per min
     Route: 042
     Dates: start: 20110415, end: 20121018
  2. COUMADIN [Concomitant]
  3. DAPTOMYCIN [Concomitant]

REACTIONS (3)
  - Endocarditis bacterial [Fatal]
  - Right ventricular failure [Fatal]
  - Hypoxia [Fatal]
